FAERS Safety Report 21355162 (Version 2)
Quarter: 2022Q3

REPORT INFORMATION
  Report Type: Spontaneous
  Country: US (occurrence: US)
  Receive Date: 20220920
  Receipt Date: 20220922
  Transmission Date: 20221027
  Serious: No
  Sender: FDA-Public Use
  Company Number: US-NOVARTISTESTPH-NVSC2022US212346

PATIENT
  Sex: Female

DRUGS (1)
  1. KETOCONAZOLE [Suspect]
     Active Substance: KETOCONAZOLE
     Indication: Product used for unknown indication
     Dosage: 60 G  TWICE A DAY, MORNING AND NIGHT
     Route: 065

REACTIONS (3)
  - Hypersensitivity [Unknown]
  - Peripheral swelling [Unknown]
  - Erythema [Unknown]
